FAERS Safety Report 6382179-8 (Version None)
Quarter: 2009Q3

REPORT INFORMATION
  Report Type: 
  Country: None (occurrence: None)
  Receive Date: 20090930
  Receipt Date: 20090917
  Transmission Date: 20100115
  Serious: Yes (Hospitalization)
  Sender: FDA-Public Use
  Company Number: JP-PFIZER INC-2009251702

PATIENT
  Age: 41 Year

DRUGS (3)
  1. ZITHROMAC SR [Suspect]
     Dosage: 2 G, SINGLE
     Route: 048
     Dates: start: 20090730, end: 20090730
  2. CARBOCISTEINE [Suspect]
     Route: 048
     Dates: start: 20090730
  3. HERBAL PREPARATION [Suspect]
     Route: 048

REACTIONS (1)
  - TREMOR [None]
